FAERS Safety Report 8464518-7 (Version None)
Quarter: 2012Q2

REPORT INFORMATION
  Report Type: 
  Country: None (occurrence: None)
  Receive Date: 20120620
  Receipt Date: 20120620
  Transmission Date: 20120825
  Serious: No
  Sender: FDA-Public Use
  Company Number: None

PATIENT
  Sex: Female
  Weight: 56.6996 kg

DRUGS (1)
  1. MODAFANIL [Suspect]
     Dosage: 200 MG 1 DAILY TABS
     Dates: start: 20120608, end: 20120610

REACTIONS (2)
  - DYSPNOEA [None]
  - ABDOMINAL PAIN UPPER [None]
